FAERS Safety Report 8597820-9 (Version None)
Quarter: 2012Q3

REPORT INFORMATION
  Report Type: 
  Country: None (occurrence: None)
  Receive Date: 20120816
  Receipt Date: 20120606
  Transmission Date: 20120928
  Serious: Yes (Hospitalization, Other)
  Sender: FDA-Public Use
  Company Number: TR-BAYER-2012-056751

PATIENT
  Age: 66 Year
  Sex: Male

DRUGS (4)
  1. CIPROFLOXACIN [Suspect]
     Indication: ANTIBIOTIC PROPHYLAXIS
     Dosage: 500 MG, BID
  2. IMIPENEM [Concomitant]
     Dosage: 500 MG, QID
  3. AMOXICILLIN AND CLAVULANATE POTASSIUM [Concomitant]
     Dosage: 1 G, UNK
  4. CIPROFLOXACIN [Suspect]
     Indication: PROSTATIC SPECIFIC ANTIGEN INCREASED
     Dosage: 500 MG, BID
     Route: 048

REACTIONS (9)
  - PYREXIA [None]
  - PROSTATITIS [None]
  - URINARY RETENTION [None]
  - ESCHERICHIA INFECTION [None]
  - CHILLS [None]
  - DRUG RESISTANCE [None]
  - MALAISE [None]
  - HAEMATURIA [None]
  - DYSURIA [None]
